FAERS Safety Report 11040487 (Version 2)
Quarter: 2015Q2

REPORT INFORMATION
  Report Type: Spontaneous
  Country: US (occurrence: US)
  Receive Date: 20150416
  Receipt Date: 20150525
  Transmission Date: 20150821
  Serious: No
  Sender: FDA-Public Use
  Company Number: US-JNJFOC-20130711857

PATIENT
  Age: 89 Year
  Sex: Female
  Weight: 50.35 kg

DRUGS (13)
  1. XARELTO [Suspect]
     Active Substance: RIVAROXABAN
     Indication: CEREBROVASCULAR ACCIDENT PROPHYLAXIS
     Route: 048
     Dates: start: 201303
  2. XANAX [Concomitant]
     Active Substance: ALPRAZOLAM
     Indication: STRESS
     Route: 048
  3. XARELTO [Suspect]
     Active Substance: RIVAROXABAN
     Indication: ATRIAL FIBRILLATION
     Route: 048
     Dates: start: 201303
  4. COREG [Concomitant]
     Active Substance: CARVEDILOL
     Indication: CARDIAC DISORDER
     Route: 048
  5. LASIX [Concomitant]
     Active Substance: FUROSEMIDE
     Indication: FLUID RETENTION
     Route: 048
  6. DIGOXIN. [Concomitant]
     Active Substance: DIGOXIN
     Indication: CARDIAC DISORDER
     Route: 048
     Dates: start: 201303
  7. POTASSIUM [Concomitant]
     Active Substance: POTASSIUM
     Indication: PRODUCT USED FOR UNKNOWN INDICATION
     Route: 048
  8. XARELTO [Suspect]
     Active Substance: RIVAROXABAN
     Indication: THROMBOSIS PROPHYLAXIS
     Route: 048
     Dates: start: 201303
  9. ASPIRIN. [Concomitant]
     Active Substance: ASPIRIN
     Indication: CARDIAC DISORDER
     Route: 048
  10. LISINOPRIL. [Concomitant]
     Active Substance: LISINOPRIL
     Indication: CARDIAC DISORDER
     Route: 048
     Dates: start: 201303
  11. ALDACTONE [Concomitant]
     Active Substance: SPIRONOLACTONE
     Indication: CARDIAC DISORDER
     Dosage: IF BLOOD PRESSURE IS OVER 100
     Route: 048
     Dates: start: 201303
  12. MIRALAX [Concomitant]
     Active Substance: POLYETHYLENE GLYCOL 3350
     Indication: CONSTIPATION
     Route: 048
     Dates: start: 201301
  13. DIGOXIN. [Concomitant]
     Active Substance: DIGOXIN
     Indication: CARDIAC DISORDER
     Route: 048
     Dates: end: 201303

REACTIONS (4)
  - Off label use [Not Recovered/Not Resolved]
  - Paraesthesia [Not Recovered/Not Resolved]
  - Hypoaesthesia [Not Recovered/Not Resolved]
  - Pain in extremity [Not Recovered/Not Resolved]

NARRATIVE: CASE EVENT DATE: 201303
